FAERS Safety Report 23848585 (Version 1)
Quarter: 2024Q2

REPORT INFORMATION
  Report Type: Spontaneous
  Country: US (occurrence: None)
  Receive Date: 20240511
  Receipt Date: 20240511
  Transmission Date: 20240716
  Serious: Yes (Hospitalization)
  Sender: FDA-Public Use
  Company Number: None

PATIENT
  Age: 44 Year
  Sex: Male

DRUGS (1)
  1. EMPAGLIFLOZIN [Suspect]
     Active Substance: EMPAGLIFLOZIN
     Indication: Diabetes mellitus
     Dosage: OTHER QUANTITY : ONE TAB;?FREQUENCY : DAILY;?
     Route: 048
     Dates: start: 20211201, end: 20220303

REACTIONS (6)
  - Dizziness [None]
  - Hypotension [None]
  - Blood glucose decreased [None]
  - Weight decreased [None]
  - Neoplasm malignant [None]
  - Renal disorder [None]

NARRATIVE: CASE EVENT DATE: 20220304
